FAERS Safety Report 14611660 (Version 2)
Quarter: 2018Q4

REPORT INFORMATION
  Report Type: Spontaneous
  Country: FR (occurrence: FR)
  Receive Date: 20180308
  Receipt Date: 20181015
  Transmission Date: 20190204
  Serious: Yes (Other)
  Sender: FDA-Public Use
  Company Number: FR-MERCK KGAA-2043256

PATIENT
  Age: 64 Year
  Sex: Female
  Weight: 76 kg

DRUGS (1)
  1. EUTHYROX [Suspect]
     Active Substance: LEVOTHYROXINE SODIUM
     Indication: THYROIDECTOMY
     Route: 048
     Dates: start: 201703, end: 201711

REACTIONS (11)
  - Headache [Recovered/Resolved]
  - Vomiting [Recovered/Resolved]
  - Hypotension [Not Recovered/Not Resolved]
  - Hypertension [Recovered/Resolved]
  - Hypothermia [Recovered/Resolved]
  - Blood thyroid stimulating hormone increased [Recovered/Resolved]
  - Back pain [Recovered/Resolved]
  - Asthenia [Recovered/Resolved]
  - Diarrhoea [Recovered/Resolved]
  - Abnormal loss of weight [Recovered/Resolved]
  - Alopecia [Recovered/Resolved]

NARRATIVE: CASE EVENT DATE: 201705
